FAERS Safety Report 14599121 (Version 3)
Quarter: 2018Q3

REPORT INFORMATION
  Report Type: Spontaneous
  Country: US (occurrence: US)
  Receive Date: 20180305
  Receipt Date: 20180716
  Transmission Date: 20181010
  Serious: Yes (Other)
  Sender: FDA-Public Use
  Company Number: US-BAYER-2018-042240

PATIENT
  Age: 27 Year
  Sex: Female
  Weight: 60.8 kg

DRUGS (2)
  1. PRENATAL VITAMINS [Concomitant]
     Active Substance: VITAMINS
     Dosage: UNK
  2. MIRENA [Suspect]
     Active Substance: LEVONORGESTREL
     Indication: CONTRACEPTION
     Dosage: 20 MCG/24HR, CONT
     Route: 015
     Dates: start: 20180109, end: 20180111

REACTIONS (7)
  - Uterine cervix stenosis [None]
  - Procedural pain [None]
  - Vaginal discharge [None]
  - Medical device pain [None]
  - Device difficult to use [None]
  - Post procedural haemorrhage [None]
  - Device expulsion [None]

NARRATIVE: CASE EVENT DATE: 20180109
